FAERS Safety Report 9124391 (Version 1)
Quarter: 2013Q1

REPORT INFORMATION
  Report Type: Spontaneous
  Country: AU (occurrence: AU)
  Receive Date: 20130116
  Receipt Date: 20130116
  Transmission Date: 20140127
  Serious: Yes (Other)
  Sender: FDA-Public Use
  Company Number: AU-PFIZER INC-2013013449

PATIENT
  Sex: Female

DRUGS (2)
  1. SYNAREL [Suspect]
     Indication: ENDOMETRIOSIS
  2. MORPHINE [Concomitant]
     Indication: NEURALGIA

REACTIONS (3)
  - Arthritis [Unknown]
  - Local swelling [Unknown]
  - Pain in extremity [Unknown]
